FAERS Safety Report 6554381-3 (Version None)
Quarter: 2010Q1

REPORT INFORMATION
  Report Type: 
  Country: None (occurrence: None)
  Receive Date: 20100127
  Receipt Date: 20100118
  Transmission Date: 20100710
  Serious: Yes (Other)
  Sender: FDA-Public Use
  Company Number: D0066113A

PATIENT
  Age: 78 Year
  Sex: Female
  Weight: 79 kg

DRUGS (4)
  1. FRAXIPARIN [Suspect]
     Indication: PROPHYLAXIS
     Dosage: .8ML PER DAY
     Route: 058
     Dates: start: 20080318, end: 20080322
  2. FONDAPARINUX SODIUM [Suspect]
     Dosage: 7.5MG PER DAY
     Route: 058
     Dates: start: 20080323, end: 20080327
  3. UNFRACTIONATED HEPARIN [Concomitant]
     Route: 065
     Dates: start: 20080319, end: 20080319
  4. PHENPROCOUMON [Concomitant]
     Route: 065
     Dates: start: 20080322, end: 20080322

REACTIONS (3)
  - BLADDER TAMPONADE [None]
  - HAEMATURIA [None]
  - HEPARIN-INDUCED THROMBOCYTOPENIA [None]
